FAERS Safety Report 9462182 (Version 2)
Quarter: 2013Q3

REPORT INFORMATION
  Report Type: Spontaneous
  Country: DK (occurrence: JP)
  Receive Date: 20130816
  Receipt Date: 20130910
  Transmission Date: 20140515
  Serious: Yes (Hospitalization)
  Sender: FDA-Public Use
  Company Number: JP-FRI-1000047793

PATIENT
  Age: 6 Decade
  Sex: Male

DRUGS (4)
  1. LEXAPRO [Suspect]
     Indication: DEPRESSION
     Dosage: 10 MG
     Route: 048
     Dates: start: 20130603, end: 20130701
  2. MYSLEE [Concomitant]
     Route: 048
  3. SOLANAX [Concomitant]
     Route: 048
  4. DOGMATYL [Concomitant]
     Route: 048

REACTIONS (1)
  - Hepatic function abnormal [Recovered/Resolved]
